FAERS Safety Report 9705696 (Version 1)
Quarter: 2013Q4

REPORT INFORMATION
  Report Type: Spontaneous
  Country: US (occurrence: US)
  Receive Date: 20131122
  Receipt Date: 20131122
  Transmission Date: 20140711
  Serious: No
  Sender: FDA-Public Use
  Company Number: US-GILEAD-2008-0017766

PATIENT
  Sex: Female
  Weight: 70.31 kg

DRUGS (20)
  1. LETAIRIS [Suspect]
     Indication: PULMONARY ARTERIAL HYPERTENSION
     Route: 048
     Dates: start: 20080627
  2. VITAMIN B12 [Concomitant]
     Dosage: AS DIRECTED
     Route: 048
  3. OMEGA-3 [Concomitant]
     Route: 048
  4. MUCINEX [Concomitant]
     Route: 048
  5. FOLIC ACID [Concomitant]
     Route: 048
  6. VENTAVIS [Concomitant]
     Dosage: 6-9XD
     Route: 055
  7. INDAPAMIDE [Concomitant]
     Route: 048
  8. POTASSIUM CHLORIDE [Concomitant]
     Route: 048
  9. BONIVA [Concomitant]
     Dosage: IN THE MORNING
     Route: 048
  10. ADVAIR [Concomitant]
     Route: 055
  11. XOPENEX [Concomitant]
     Route: 055
  12. IRON [Concomitant]
     Route: 048
  13. OXYGEN [Concomitant]
     Dosage: AT NIGHT
     Route: 055
  14. NIFEDIPINE [Concomitant]
     Route: 048
  15. TUMS [Concomitant]
     Route: 048
  16. MULTIVITAMIN [Concomitant]
     Route: 048
  17. TYLENOL [Concomitant]
     Route: 048
  18. WARFARIN [Concomitant]
     Dosage: AS DIRECTED
     Route: 048
  19. LASIX [Concomitant]
     Route: 048
  20. FEOSOL [Concomitant]
     Route: 048

REACTIONS (2)
  - Skin tightness [None]
  - Pain of skin [None]
